FAERS Safety Report 9562872 (Version 1)
Quarter: 2013Q3

REPORT INFORMATION
  Report Type: Spontaneous
  Country: BR (occurrence: BR)
  Receive Date: 20130927
  Receipt Date: 20130927
  Transmission Date: 20140515
  Serious: Yes (Other)
  Sender: FDA-Public Use
  Company Number: BR-PFIZER INC-2013273771

PATIENT
  Age: 53 Year
  Sex: Female

DRUGS (2)
  1. XALATAN [Suspect]
     Indication: GLAUCOMA
     Dosage: ONE DROP IN EACH EYE (3 UG), 2X/DAY
     Route: 047
     Dates: start: 2010
  2. TIMOLOL [Concomitant]
     Indication: GLAUCOMA
     Dosage: UNK
     Dates: start: 2003

REACTIONS (3)
  - Glaucoma [Unknown]
  - Cataract [Unknown]
  - Off label use [Not Recovered/Not Resolved]
